FAERS Safety Report 8216053-9 (Version None)
Quarter: 2012Q1

REPORT INFORMATION
  Report Type: 
  Country: None (occurrence: None)
  Receive Date: 20120316
  Receipt Date: 20120308
  Transmission Date: 20120608
  Serious: Yes (Hospitalization, Other)
  Sender: FDA-Public Use
  Company Number: US-BAYER-2011-077291

PATIENT
  Age: 34 Year
  Sex: Female
  Weight: 89.342 kg

DRUGS (4)
  1. YAZ [Suspect]
     Indication: MALAISE
  2. YASMIN [Suspect]
     Indication: PREMENSTRUAL SYNDROME
     Dosage: UNK
     Dates: start: 20030801, end: 20070501
  3. YASMIN [Suspect]
     Indication: MALAISE
  4. YAZ [Suspect]
     Indication: PREMENSTRUAL SYNDROME
     Dosage: UNK
     Dates: start: 20070601, end: 20090701

REACTIONS (8)
  - MYOCARDIAL INFARCTION [None]
  - PULMONARY EMBOLISM [None]
  - PAIN [None]
  - CHOLELITHIASIS [None]
  - CEREBROVASCULAR ACCIDENT [None]
  - FEAR [None]
  - MENTAL DISORDER [None]
  - DEEP VEIN THROMBOSIS [None]
